FAERS Safety Report 23980427 (Version 1)
Quarter: 2024Q2

REPORT INFORMATION
  Report Type: Spontaneous
  Country: US (occurrence: US)
  Receive Date: 20240617
  Receipt Date: 20240617
  Transmission Date: 20240716
  Serious: No
  Sender: FDA-Public Use
  Company Number: US-HIKMA PHARMACEUTICALS USA INC.-US-H14001-23-01882

PATIENT
  Age: 98 Year
  Sex: Female

DRUGS (4)
  1. METHADONE [Suspect]
     Active Substance: METHADONE HYDROCHLORIDE
     Indication: Fibromyalgia
     Dosage: .12 MILLIGRAM, Q12H
     Route: 048
  2. METHADONE [Suspect]
     Active Substance: METHADONE HYDROCHLORIDE
     Indication: Spinal fracture
  3. METHADONE [Suspect]
     Active Substance: METHADONE HYDROCHLORIDE
     Indication: Neuropathy peripheral
  4. TRAZODONE [Suspect]
     Active Substance: TRAZODONE HYDROCHLORIDE
     Indication: Product used for unknown indication
     Dosage: UNKNOWN
     Route: 065

REACTIONS (6)
  - Irritable bowel syndrome [Recovered/Resolved]
  - Fibromyalgia [Not Recovered/Not Resolved]
  - Asthma [Recovered/Resolved]
  - Allergic reaction to excipient [Not Recovered/Not Resolved]
  - Diarrhoea [Recovered/Resolved]
  - Adverse event [Not Recovered/Not Resolved]
